FAERS Safety Report 13569182 (Version 1)
Quarter: 2017Q2

REPORT INFORMATION
  Report Type: Other
  Country: GB (occurrence: GB)
  Receive Date: 20170522
  Receipt Date: 20170522
  Transmission Date: 20170830
  Serious: Yes (Other)
  Sender: FDA-Public Use
  Company Number: GB-B. BRAUN MEDICAL INC.-2021047

PATIENT
  Sex: Female
  Weight: 3.37 kg

DRUGS (5)
  1. SODIUM CHLORIDE. [Suspect]
     Active Substance: SODIUM CHLORIDE
     Indication: HYPONATRAEMIA
  2. CAPTOPRIL. [Concomitant]
     Active Substance: CAPTOPRIL
  3. OXYGEN. [Concomitant]
     Active Substance: OXYGEN
  4. FUROSEMIDE. [Concomitant]
     Active Substance: FUROSEMIDE
  5. TOLVAPTAN [Concomitant]
     Active Substance: TOLVAPTAN
     Route: 042

REACTIONS (1)
  - Hypertension [Unknown]
